FAERS Safety Report 7973651-5 (Version None)
Quarter: 2011Q4

REPORT INFORMATION
  Report Type: 
  Country: None (occurrence: None)
  Receive Date: 20111213
  Receipt Date: 20111208
  Transmission Date: 20120403
  Serious: Yes (Hospitalization)
  Sender: FDA-Public Use
  Company Number: DE-ROCHE-1014377

PATIENT
  Sex: Female
  Weight: 58 kg

DRUGS (16)
  1. HERCEPTIN [Suspect]
     Indication: BREAST CANCER
     Route: 042
     Dates: start: 20111020, end: 20111116
  2. PACLITAXEL [Suspect]
     Indication: BREAST CANCER
     Dosage: TEMPORARILY INTERRUPTED
     Route: 042
     Dates: start: 20111020, end: 20111116
  3. DOXORUBICIN HCL [Suspect]
     Route: 042
     Dates: end: 20111207
  4. CARBOPLATIN [Suspect]
     Indication: BREAST CANCER
     Dosage: TEMPORARILY INTERRUPTED
     Route: 042
     Dates: start: 20111020, end: 20111116
  5. ACETAMINOPHEN [Concomitant]
     Dates: start: 20111116
  6. LAPATINIB [Suspect]
     Route: 048
     Dates: start: 20111120, end: 20111207
  7. DOXORUBICIN HCL [Suspect]
     Indication: BREAST CANCER
     Dosage: TEMPORARILY INTERRUPTED
     Route: 042
     Dates: start: 20111020, end: 20111116
  8. VOMEX A [Concomitant]
     Dates: start: 20111116
  9. HERCEPTIN [Suspect]
     Route: 042
     Dates: end: 20111207
  10. LAPATINIB [Suspect]
     Indication: BREAST CANCER
     Dosage: TEMPORARILY INTERRUPTED
     Route: 048
     Dates: start: 20111020, end: 20111116
  11. IMODIUM [Concomitant]
     Dates: start: 20111116
  12. PACLITAXEL [Suspect]
     Route: 042
     Dates: end: 20111207
  13. CARBOPLATIN [Suspect]
     Route: 042
     Dates: end: 20111207
  14. LOPERAMIDE HCL [Concomitant]
     Dates: start: 20111028
  15. METOCLOPRAMIDE [Concomitant]
     Dates: start: 20111103
  16. FORTECORTIN [Concomitant]
     Dates: start: 20111130

REACTIONS (2)
  - NEUTROPENIA [None]
  - GENERAL PHYSICAL HEALTH DETERIORATION [None]
